FAERS Safety Report 8586398-1 (Version None)
Quarter: 2012Q3

REPORT INFORMATION
  Report Type: 
  Country: None (occurrence: None)
  Receive Date: 20120810
  Receipt Date: 20120803
  Transmission Date: 20120928
  Serious: Yes (Hospitalization)
  Sender: FDA-Public Use
  Company Number: ES-ROCHE-1099320

PATIENT
  Age: 82 Year
  Sex: Male

DRUGS (8)
  1. MONTELUKAST [Concomitant]
  2. XOLAIR [Suspect]
     Indication: ASTHMA
     Route: 058
     Dates: start: 20100415, end: 20120419
  3. TERBUTALINE [Concomitant]
  4. LANSOPRAZOLE [Concomitant]
  5. TAMSULOSIN HCL [Concomitant]
  6. SYMBICORT [Concomitant]
  7. SIMVASTATIN [Concomitant]
  8. METHYLPREDNISOLONE [Concomitant]

REACTIONS (1)
  - ACQUIRED HAEMOPHILIA [None]
